FAERS Safety Report 6142420-3 (Version None)
Quarter: 2009Q2

REPORT INFORMATION
  Report Type: 
  Country: None (occurrence: None)
  Receive Date: 20090403
  Receipt Date: 20090325
  Transmission Date: 20091009
  Serious: Yes (Death, Hospitalization)
  Sender: FDA-Public Use
  Company Number: US-BIOGENIDEC-2008BI034585

PATIENT
  Age: 56 Year
  Sex: Female
  Weight: 90 kg

DRUGS (2)
  1. AVONEX [Suspect]
     Indication: MULTIPLE SCLEROSIS
     Route: 030
     Dates: start: 20060707, end: 20081224
  2. AVONEX [Suspect]
     Route: 030

REACTIONS (13)
  - ABASIA [None]
  - ABDOMINAL DISCOMFORT [None]
  - ANAEMIA [None]
  - BLOOD POTASSIUM DECREASED [None]
  - BREAST CANCER METASTATIC [None]
  - CEREBROVASCULAR ACCIDENT [None]
  - DEHYDRATION [None]
  - DYSSTASIA [None]
  - LEUKOPENIA [None]
  - MUSCULAR WEAKNESS [None]
  - MYOCARDIAL INFARCTION [None]
  - VOMITING [None]
  - WEIGHT DECREASED [None]
